FAERS Safety Report 4349205-9 (Version None)
Quarter: 2004Q2

REPORT INFORMATION
  Report Type: 
  Country: None (occurrence: None)
  Receive Date: 20040428
  Receipt Date: 20040310
  Transmission Date: 20050107
  Serious: Yes (Hospitalization)
  Sender: FDA-Public Use
  Company Number: JP-ROCHE-361933

PATIENT
  Age: 12 Year
  Sex: Male
  Weight: 37 kg

DRUGS (3)
  1. VESANOID [Suspect]
     Indication: ACUTE PROMYELOCYTIC LEUKAEMIA
     Route: 048
     Dates: start: 20040302, end: 20040309
  2. VESANOID [Suspect]
     Route: 048
     Dates: start: 20040316
  3. NAFAMOSTAT MESILATE [Suspect]
     Route: 065
     Dates: start: 20040301, end: 20040309

REACTIONS (5)
  - BLOOD CALCIUM INCREASED [None]
  - BLOOD POTASSIUM INCREASED [None]
  - BLOOD SODIUM INCREASED [None]
  - BLOOD UREA INCREASED [None]
  - HYPONATRAEMIA [None]
